FAERS Safety Report 12059787 (Version 1)
Quarter: 2016Q1

REPORT INFORMATION
  Report Type: Spontaneous
  Country: FR (occurrence: FR)
  Receive Date: 20160210
  Receipt Date: 20160210
  Transmission Date: 20160526
  Serious: Yes (Hospitalization)
  Sender: FDA-Public Use
  Company Number: FR-PFIZER INC-2016065354

PATIENT
  Age: 82 Year
  Sex: Male

DRUGS (15)
  1. NORSET [Concomitant]
     Active Substance: MIRTAZAPINE
     Dosage: 2 DF OF 15 MG, 1X/DAY IN THE EVENING
  2. CRESTOR [Concomitant]
     Active Substance: ROSUVASTATIN CALCIUM
     Dosage: 1 DF OF 5 MG, 1X/DAY IN THE EVENING
  3. COMBODART [Concomitant]
     Active Substance: DUTASTERIDE\TAMSULOSIN
     Dosage: 1 DF OF 0.5 MG/0.4 MG, DAILY
  4. KARDEGIC [Concomitant]
     Active Substance: ASPIRIN LYSINE
     Dosage: 1 DF OF 75 MG, 1X/DAY IN THE MORNING
  5. PROCORALAN [Concomitant]
     Active Substance: IVABRADINE
     Dosage: 7.5 MG, 2X/DAY IN THE MORNING AND IN THE EVENING
  6. DITROPAN [Concomitant]
     Active Substance: OXYBUTYNIN CHLORIDE
     Dosage: 0.5 DF OF 5 MG, 1X/DAY IN THE EVENING
  7. XANAX [Suspect]
     Active Substance: ALPRAZOLAM
     Dosage: 0.5 DF OF 0.25 MG, 2X/DAY AT BEDTIME AND DURING THE NIGHT
     Route: 048
     Dates: end: 20160106
  8. ATARAX [Concomitant]
     Active Substance: HYDROXYZINE\HYDROXYZINE HYDROCHLORIDE
     Dosage: 2 DF OF 25 MG, 1X/DAY AT BEDTIME
  9. ZYPREXA [Concomitant]
     Active Substance: OLANZAPINE
  10. IMOVANE [Concomitant]
     Active Substance: ZOPICLONE
  11. LAMALINE [Suspect]
     Active Substance: ACETAMINOPHEN\CAFFEINE\OPIUM
     Indication: PAIN
     Dosage: 2 DF, AS NEEDED
     Route: 048
  12. XEROQUEL [Concomitant]
     Active Substance: QUETIAPINE FUMARATE
     Dosage: 1 DF OF 400 MG, 1X/DAY
  13. EFFEXOR [Concomitant]
     Active Substance: VENLAFAXINE HYDROCHLORIDE
     Indication: DEPRESSION
  14. ZYMAD [Concomitant]
     Active Substance: CHOLECALCIFEROL
     Dosage: 1 VIAL OF 200000 IU, EVERY 3 MONTHS
  15. STILNOX [Suspect]
     Active Substance: ZOLPIDEM TARTRATE
     Dosage: 1 DF OF 10 MG, 1X/DAY AT BEDTIME
     Route: 048
     Dates: end: 20160106

REACTIONS (2)
  - Respiratory depression [Recovered/Resolved]
  - Toxicity to various agents [Recovered/Resolved]

NARRATIVE: CASE EVENT DATE: 20160106
